FAERS Safety Report 21444463 (Version 1)
Quarter: 2022Q4

REPORT INFORMATION
  Report Type: Report from Study
  Country: US (occurrence: US)
  Receive Date: 20221012
  Receipt Date: 20221012
  Transmission Date: 20230113
  Serious: No
  Sender: FDA-Public Use
  Company Number: US-ABBVIE-22K-163-4528255-00

PATIENT
  Sex: Female

DRUGS (1)
  1. HUMIRA [Suspect]
     Active Substance: ADALIMUMAB
     Indication: Rheumatoid arthritis
     Dosage: HUMIRA 40MG/0.4ML CITRATE FREE
     Route: 058
     Dates: start: 20220707

REACTIONS (6)
  - Hordeolum [Recovering/Resolving]
  - Eczema [Not Recovered/Not Resolved]
  - Upper respiratory tract infection [Recovering/Resolving]
  - Oral herpes [Recovered/Resolved]
  - Rheumatoid arthritis [Unknown]
  - Oral discomfort [Unknown]

NARRATIVE: CASE EVENT DATE: 20220101
